FAERS Safety Report 7657679-0 (Version None)
Quarter: 2011Q3

REPORT INFORMATION
  Report Type: 
  Country: None (occurrence: None)
  Receive Date: 20110804
  Receipt Date: 20110727
  Transmission Date: 20111222
  Serious: Yes (Other)
  Sender: FDA-Public Use
  Company Number: US-ASTRAZENECA-2011SE03167

PATIENT
  Age: 44 Year
  Sex: Female

DRUGS (3)
  1. PRILOSEC [Suspect]
     Route: 048
  2. PRILOSEC OTC [Suspect]
     Route: 048
  3. NEXIUM [Suspect]
     Route: 048

REACTIONS (9)
  - DYSGEUSIA [None]
  - CHRONIC MYELOID LEUKAEMIA [None]
  - WRONG DRUG ADMINISTERED [None]
  - DRUG INEFFECTIVE [None]
  - GASTROOESOPHAGEAL REFLUX DISEASE [None]
  - GLOSSITIS [None]
  - ERUCTATION [None]
  - ABDOMINAL DISTENSION [None]
  - ABDOMINAL PAIN UPPER [None]
